FAERS Safety Report 10652475 (Version 3)
Quarter: 2015Q3

REPORT INFORMATION
  Report Type: Report from Study
  Country: PL (occurrence: PL)
  Receive Date: 20141215
  Receipt Date: 20150807
  Transmission Date: 20151125
  Serious: Yes (Hospitalization, Other)
  Sender: FDA-Public Use
  Company Number: PL-PFIZER INC-2014342908

PATIENT
  Age: 63 Year
  Sex: Male

DRUGS (9)
  1. ACCUPRO [Concomitant]
     Active Substance: QUINAPRIL HYDROCHLORIDE
     Indication: HYPERTENSION
     Dosage: UNK
     Dates: start: 2002
  2. AMLOPIN [Concomitant]
     Active Substance: AMLODIPINE BESYLATE
     Indication: HYPERTENSION
     Dosage: UNK
     Dates: start: 2002
  3. BISOCARD [Concomitant]
     Active Substance: BISOPROLOL
     Indication: HYPERTENSION
     Dosage: UNK
     Dates: start: 2002
  4. GRANULOCYTE MACROPHAGE COLONY STIM FACTOR [Suspect]
     Active Substance: GRANULOCYTE-MACROPHAGE COLONY-STIMULATING FACTOR
     Indication: METASTATIC RENAL CELL CARCINOMA
     Dosage: 75 ?G, UNK
     Route: 023
     Dates: start: 20120910, end: 20121221
  5. MILURIT [Concomitant]
     Active Substance: ALLOPURINOL
     Indication: DISEASE SUSCEPTIBILITY
     Dosage: UNK
     Dates: start: 2002
  6. SUNITINIB MALATE. [Suspect]
     Active Substance: SUNITINIB MALATE
     Indication: METASTATIC RENAL CELL CARCINOMA
     Dosage: 25 MG, UNK
     Route: 048
     Dates: start: 20120803, end: 20140918
  7. CYCLOPHOSPHAMIDE. [Suspect]
     Active Substance: CYCLOPHOSPHAMIDE
     Indication: METASTATIC RENAL CELL CARCINOMA
     Dosage: 729.1 MG, 1X/DAY
     Route: 042
     Dates: start: 20120907, end: 20120907
  8. TERTENSIF [Concomitant]
     Indication: HYPERTENSION
     Dosage: UNK
     Dates: start: 2002
  9. IMA901 [Suspect]
     Active Substance: INVESTIGATIONAL PRODUCT
     Indication: METASTATIC RENAL CELL CARCINOMA
     Dosage: 4.13 MG, UNK
     Route: 023
     Dates: start: 20120910, end: 20121221

REACTIONS (1)
  - Hydrothorax [Not Recovered/Not Resolved]

NARRATIVE: CASE EVENT DATE: 20140918
